FAERS Safety Report 4377263-4 (Version None)
Quarter: 2004Q2

REPORT INFORMATION
  Report Type: 
  Country: None (occurrence: None)
  Receive Date: 20040609
  Receipt Date: 20040316
  Transmission Date: 20050107
  Serious: No
  Sender: FDA-Public Use
  Company Number: 2004204175US

PATIENT
  Age: 62 Year
  Sex: Female

DRUGS (5)
  1. BEXTRA [Suspect]
     Indication: OSTEOARTHRITIS
     Dosage: 10 MG, QD, UNK
     Dates: start: 20031001
  2. ATENOLOL [Concomitant]
  3. ZANTAC [Concomitant]
  4. ROBAXIN (EMTHOCARBAMOL0 [Concomitant]
  5. PREMARIN [Concomitant]

REACTIONS (1)
  - BLOOD IRON [None]
